FAERS Safety Report 6896792-2 (Version None)
Quarter: 2010Q3

REPORT INFORMATION
  Report Type: 
  Country: None (occurrence: None)
  Receive Date: 20100802
  Receipt Date: 20070129
  Transmission Date: 20110219
  Serious: No
  Sender: FDA-Public Use
  Company Number: US-PFIZER INC-2007007931

PATIENT
  Sex: Male
  Weight: 113.4 kg

DRUGS (2)
  1. LYRICA [Suspect]
     Indication: NEURALGIA
     Dates: start: 20061201
  2. ANALGESICS [Concomitant]

REACTIONS (1)
  - VISION BLURRED [None]
